FAERS Safety Report 5322401-X (Version None)
Quarter: 2007Q2

REPORT INFORMATION
  Report Type: 
  Country: None (occurrence: None)
  Receive Date: 20070511
  Receipt Date: 20070501
  Transmission Date: 20071010
  Serious: Yes (Other)
  Sender: FDA-Public Use
  Company Number: US-ELI_LILLY_AND_COMPANY-US200704006548

PATIENT
  Sex: Female

DRUGS (2)
  1. FORTEO [Suspect]
     Indication: COMPRESSION FRACTURE
     Dates: start: 20061101, end: 20070501
  2. CALCIUM CHLORIDE [Concomitant]

REACTIONS (2)
  - BACK PAIN [None]
  - LYMPHOMA [None]
